FAERS Safety Report 5286181-9 (Version None)
Quarter: 2007Q2

REPORT INFORMATION
  Report Type: 
  Country: None (occurrence: None)
  Receive Date: 20070403
  Receipt Date: 20070403
  Transmission Date: 20071010
  Serious: Yes (Hospitalization, Disabling)
  Sender: FDA-Public Use
  Company Number: None

PATIENT
  Age: 83 Year
  Sex: Female
  Weight: 63 kg

DRUGS (12)
  1. GLEEVEC [Suspect]
     Indication: CHRONIC MYELOID LEUKAEMIA
     Dosage: 400MG DAILY PO
     Route: 048
  2. ASPIRIN [Concomitant]
  3. LISINOPRIL [Concomitant]
  4. LEVOTHYROXINE SODIUM [Concomitant]
  5. ESOMEPRAZOLE MAGNESIUM [Concomitant]
  6. ROSUVASTATIN [Concomitant]
  7. ALBUTEROL [Concomitant]
  8. FUROSEMIDE [Concomitant]
  9. ALPRAZOLAM [Concomitant]
  10. PSYLLIUM [Concomitant]
  11. OXYCODONE HCL [Concomitant]
  12. METOCLOPRAMIDE [Concomitant]

REACTIONS (6)
  - DEHYDRATION [None]
  - FATIGUE [None]
  - NAUSEA [None]
  - PYREXIA [None]
  - RASH [None]
  - VOMITING [None]
